FAERS Safety Report 19406078 (Version 1)
Quarter: 2021Q2

REPORT INFORMATION
  Report Type: Spontaneous
  Country: CN (occurrence: CN)
  Receive Date: 20210611
  Receipt Date: 20210611
  Transmission Date: 20210717
  Serious: Yes (Other)
  Sender: FDA-Public Use
  Company Number: CN-GLAXOSMITHKLINE-CNCH2021GSK035786

PATIENT
  Age: 66 Year
  Sex: Female

DRUGS (2)
  1. ASPIRIN. [Suspect]
     Active Substance: ASPIRIN
     Indication: ANTIPLATELET THERAPY
     Dosage: UNK
     Route: 048
  2. IBUPROFEN. [Suspect]
     Active Substance: IBUPROFEN
     Indication: PAIN
     Dosage: UNK
     Route: 048

REACTIONS (12)
  - Pain in extremity [Recovering/Resolving]
  - Ecchymosis [Recovered/Resolved]
  - Vessel puncture site hypoaesthesia [Recovering/Resolving]
  - Puncture site haematoma [Recovering/Resolving]
  - Puncture site haemorrhage [Recovered/Resolved]
  - Swelling [Recovering/Resolving]
  - Vascular pseudoaneurysm [Recovering/Resolving]
  - Carpal tunnel syndrome [Unknown]
  - Movement disorder [Recovering/Resolving]
  - Drug ineffective [Unknown]
  - Pain [Recovering/Resolving]
  - Median nerve injury [Recovering/Resolving]
